FAERS Safety Report 5321021-0 (Version None)
Quarter: 2007Q2

REPORT INFORMATION
  Report Type: 
  Country: None (occurrence: None)
  Receive Date: 20070504
  Receipt Date: 20070427
  Transmission Date: 20071010
  Serious: Yes (Death, Hospitalization)
  Sender: FDA-Public Use
  Company Number: TPA2007A00712

PATIENT
  Age: 62 Year
  Sex: Male

DRUGS (6)
  1. ACTOS [Suspect]
     Indication: DIABETES MELLITUS INADEQUATE CONTROL
     Dosage: 45 MG, PER ORAL
     Route: 048
     Dates: start: 20061226
  2. LASIX [Concomitant]
  3. PREDNISONE TAB [Concomitant]
  4. PROTONIX (PANTOIPRAZOLE) [Concomitant]
  5. PROGRAF [Concomitant]
  6. LIPITOR [Concomitant]

REACTIONS (3)
  - HEPATIC FAILURE [None]
  - HEPATOCELLULAR DAMAGE [None]
  - HEPATOTOXICITY [None]
